FAERS Safety Report 7473604-X (Version None)
Quarter: 2011Q1

REPORT INFORMATION
  Report Type: 
  Country: None (occurrence: None)
  Receive Date: 20110302
  Receipt Date: 20100813
  Transmission Date: 20110831
  Serious: Yes (Other)
  Sender: FDA-Public Use
  Company Number: 163-21880-10081382

PATIENT
  Age: 59 Year
  Sex: Female

DRUGS (5)
  1. VITAMIN B12 [Concomitant]
  2. REVLIMID [Suspect]
     Indication: MULTIPLE MYELOMA
     Dosage: 5 MG, 1 IN 1 D, PO; 10 MG, 1 IN 1 D, PO
     Route: 048
     Dates: start: 20080901
  3. REVLIMID [Suspect]
     Indication: MULTIPLE MYELOMA
     Dosage: 5 MG, 1 IN 1 D, PO; 10 MG, 1 IN 1 D, PO
     Route: 048
     Dates: start: 20090301, end: 20100101
  4. ALBUTEROL [Concomitant]
  5. SUDAFED 12 HOUR [Concomitant]

REACTIONS (2)
  - ORAL CANDIDIASIS [None]
  - ABDOMINAL HERNIA [None]
